FAERS Safety Report 12094634 (Version 6)
Quarter: 2016Q4

REPORT INFORMATION
  Report Type: Report from Study
  Country: CA (occurrence: CA)
  Receive Date: 20160219
  Receipt Date: 20161227
  Transmission Date: 20170206
  Serious: Yes (Other)
  Sender: FDA-Public Use
  Company Number: CA-JNJFOC-20160211763

PATIENT
  Age: 52 Year
  Sex: Female
  Weight: 71.99 kg

DRUGS (7)
  1. METFORMIN [Concomitant]
     Active Substance: METFORMIN HYDROCHLORIDE
     Route: 065
  2. STELARA [Suspect]
     Active Substance: USTEKINUMAB
     Indication: PSORIASIS
     Route: 058
     Dates: start: 20120925, end: 20151208
  3. RAMIPRIL. [Concomitant]
     Active Substance: RAMIPRIL
     Route: 065
  4. HUMULIN NOS [Concomitant]
     Active Substance: INSULIN HUMAN
     Route: 065
  5. GLICAZIDA [Concomitant]
     Active Substance: GLICLAZIDE
     Route: 065
  6. ATENOLOL. [Concomitant]
     Active Substance: ATENOLOL
     Route: 065
  7. LIPIDIL EZ [Concomitant]
     Active Substance: FENOFIBRATE
     Route: 065

REACTIONS (8)
  - Sepsis [Unknown]
  - Localised infection [Not Recovered/Not Resolved]
  - Off label use [Unknown]
  - Impaired healing [Recovering/Resolving]
  - Hyperkeratosis [Unknown]
  - Injury [Recovering/Resolving]
  - Osteomyelitis [Unknown]
  - Inappropriate schedule of drug administration [Unknown]

NARRATIVE: CASE EVENT DATE: 20120925
